FAERS Safety Report 19646267 (Version 1)
Quarter: 2021Q3

REPORT INFORMATION
  Report Type: Spontaneous
  Country: US (occurrence: US)
  Receive Date: 20210802
  Receipt Date: 20210802
  Transmission Date: 20211014
  Serious: Yes (Death, Other)
  Sender: FDA-Public Use
  Company Number: US-GLAXOSMITHKLINE-US2021GSK164473

PATIENT
  Sex: Male

DRUGS (1)
  1. ZANTAC [Suspect]
     Active Substance: RANITIDINE HYDROCHLORIDE
     Indication: GASTRIC ULCER
     Dosage: 150 MG
     Route: 065
     Dates: start: 19980601, end: 20170801

REACTIONS (4)
  - Neoplasm malignant [Fatal]
  - Pancreatic carcinoma [Unknown]
  - Hepatic cancer [Unknown]
  - Lung neoplasm malignant [Unknown]
